FAERS Safety Report 8158668 (Version 2)
Quarter: 2013Q1

REPORT INFORMATION
  Report Type: Spontaneous
  Country: US (occurrence: US)
  Receive Date: 20110927
  Receipt Date: 20130207
  Transmission Date: 20140127
  Serious: Yes (Hospitalization)
  Sender: FDA-Public Use
  Company Number: US-GLAXOSMITHKLINE-A0905619A

PATIENT
  Age: 67 Year
  Sex: Male

DRUGS (1)
  1. AVANDIA [Suspect]
     Indication: TYPE 2 DIABETES MELLITUS
     Dosage: 8MG PER DAY
     Route: 048

REACTIONS (5)
  - Angina pectoris [Not Recovered/Not Resolved]
  - Arteriosclerosis [Unknown]
  - Cardiac failure congestive [Unknown]
  - Percutaneous coronary intervention [Unknown]
  - Catheterisation cardiac [Unknown]
